FAERS Safety Report 7754075-2 (Version None)
Quarter: 2011Q3

REPORT INFORMATION
  Report Type: 
  Country: None (occurrence: None)
  Receive Date: 20110915
  Receipt Date: 20110913
  Transmission Date: 20111222
  Serious: Yes (Other)
  Sender: FDA-Public Use
  Company Number: JP-PFIZER INC-2011197836

PATIENT
  Age: 9 Year
  Sex: Male

DRUGS (1)
  1. HYDROCORTISONE SODIUM SUCCINATE [Suspect]
     Dosage: UNK

REACTIONS (1)
  - ASTHMA [None]
